FAERS Safety Report 10329250 (Version 5)
Quarter: 2015Q2

REPORT INFORMATION
  Report Type: Report from Study
  Country: US (occurrence: US)
  Receive Date: 20140721
  Receipt Date: 20150409
  Transmission Date: 20150821
  Serious: Yes (Hospitalization)
  Sender: FDA-Public Use
  Company Number: US-SA-2014SA016583

PATIENT
  Age: 48 Year
  Sex: Female

DRUGS (2)
  1. AUBAGIO [Suspect]
     Active Substance: TERIFLUNOMIDE
     Indication: MULTIPLE SCLEROSIS
     Route: 048
     Dates: start: 20131015, end: 20140501
  2. AUBAGIO [Suspect]
     Active Substance: TERIFLUNOMIDE
     Indication: MULTIPLE SCLEROSIS
     Route: 048
     Dates: start: 20140726

REACTIONS (8)
  - Bladder disorder [Unknown]
  - Depression [Unknown]
  - Abnormal behaviour [Unknown]
  - Drug dose omission [Unknown]
  - Malaise [Unknown]
  - Urostomy [Unknown]
  - Fistula [Unknown]
  - Wound [Unknown]

NARRATIVE: CASE EVENT DATE: 2014
